FAERS Safety Report 26130929 (Version 1)
Quarter: 2025Q4

REPORT INFORMATION
  Report Type: Spontaneous
  Country: US (occurrence: None)
  Receive Date: 20251207
  Receipt Date: 20251207
  Transmission Date: 20260117
  Serious: Yes (Hospitalization)
  Sender: FDA-CTU
  Company Number: None

PATIENT
  Age: 33 Year
  Sex: Female

DRUGS (1)
  1. ZURZUVAE [Suspect]
     Active Substance: ZURANOLONE
     Indication: Perinatal depression
     Dosage: 50 MG DAILY ORAL
     Route: 048
     Dates: start: 20251130, end: 20251201

REACTIONS (5)
  - Dizziness [None]
  - Facial discomfort [None]
  - Hypoaesthesia [None]
  - Feeling hot [None]
  - Ocular discomfort [None]

NARRATIVE: CASE EVENT DATE: 20251201
